FAERS Safety Report 15631711 (Version 1)
Quarter: 2018Q4

REPORT INFORMATION
  Report Type: Spontaneous
  Country: US (occurrence: US)
  Receive Date: 20181119
  Receipt Date: 20181119
  Transmission Date: 20190205
  Serious: Yes (Hospitalization, Other)
  Sender: FDA-Public Use
  Company Number: US-GLAXOSMITHKLINE-US2018205682

PATIENT
  Sex: Female

DRUGS (3)
  1. BREO ELLIPTA [Suspect]
     Active Substance: FLUTICASONE FUROATE\VILANTEROL TRIFENATATE
     Indication: PRODUCT USED FOR UNKNOWN INDICATION
     Dosage: 1 PUFF(S), QD
     Route: 055
     Dates: start: 2017
  2. INCRUSE ELLIPTA [Suspect]
     Active Substance: UMECLIDINIUM BROMIDE
     Indication: PRODUCT USED FOR UNKNOWN INDICATION
     Dosage: 1 PUFF(S), QD
     Route: 055
  3. OPDIVO [Concomitant]
     Active Substance: NIVOLUMAB

REACTIONS (9)
  - Fall [Recovering/Resolving]
  - Pelvic fracture [Recovering/Resolving]
  - Upper limb fracture [Recovering/Resolving]
  - Dysphonia [Unknown]
  - Physiotherapy [Unknown]
  - Surgery [Recovering/Resolving]
  - Hip fracture [Recovering/Resolving]
  - Hip surgery [Recovering/Resolving]
  - Multiple allergies [Unknown]

NARRATIVE: CASE EVENT DATE: 2018
